FAERS Safety Report 8852503 (Version 1)
Quarter: 2012Q4

REPORT INFORMATION
  Report Type: 
  Country: US (occurrence: US)
  Receive Date: 20121022
  Receipt Date: 20121022
  Transmission Date: 20130627
  Serious: Yes (Death, Other)
  Sender: FDA-Public Use
  Company Number: US-ROCHE-1142767

PATIENT

DRUGS (6)
  1. RITUXIMAB [Suspect]
     Indication: IMMUNOSUPPRESSION
     Route: 065
  2. MYCOPHENOLATE MOFETIL [Suspect]
     Indication: IMMUNOSUPPRESSION
     Route: 065
  3. RABBIT [Suspect]
     Indication: IMMUNOSUPPRESSION
     Route: 065
  4. TACROLIMUS [Suspect]
     Indication: IMMUNOSUPPRESSION
     Route: 065
  5. AZATHIOPRINE [Suspect]
     Indication: IMMUNOSUPPRESSION
     Route: 065
  6. SIROLIMUS [Suspect]
     Indication: IMMUNOSUPPRESSION
     Route: 065

REACTIONS (14)
  - Sepsis [Fatal]
  - Bacterial infection [Unknown]
  - Urinary tract infection [Unknown]
  - Wound infection [Unknown]
  - Pneumonia bacterial [Unknown]
  - Clostridium difficile infection [Unknown]
  - Abdominal abscess [Unknown]
  - Cellulitis [Unknown]
  - Sinusitis [Unknown]
  - Bronchitis [Unknown]
  - Fungal infection [Unknown]
  - Cytomegalovirus infection [Unknown]
  - Post transplant lymphoproliferative disorder [Unknown]
  - Renal impairment [Unknown]
